FAERS Safety Report 24759715 (Version 2)
Quarter: 2024Q4

REPORT INFORMATION
  Report Type: Spontaneous
  Country: US (occurrence: US)
  Receive Date: 20241220
  Receipt Date: 20241226
  Transmission Date: 20250115
  Serious: No
  Sender: SANOFI AVENTIS
  Company Number: US-SANOFI-02345345

PATIENT
  Age: 67 Year
  Sex: Female

DRUGS (1)
  1. DUPIXENT [Suspect]
     Active Substance: DUPILUMAB
     Indication: Asthma
     Dosage: 300 MG, QOW
     Route: 058
     Dates: end: 20241202

REACTIONS (31)
  - Wheezing [Unknown]
  - Illness [Unknown]
  - Nausea [Unknown]
  - Dizziness [Unknown]
  - Abdominal pain upper [Unknown]
  - Sinonasal obstruction [Unknown]
  - Diarrhoea [Unknown]
  - Epistaxis [Unknown]
  - Dry skin [Unknown]
  - Sneezing [Unknown]
  - Cough [Unknown]
  - Asthenia [Unknown]
  - Paraesthesia [Unknown]
  - Hypoaesthesia [Unknown]
  - Dyspnoea [Unknown]
  - Mobility decreased [Unknown]
  - Swelling [Unknown]
  - Myalgia [Unknown]
  - Vision blurred [Unknown]
  - Nasopharyngitis [Unknown]
  - Erythema [Unknown]
  - Insomnia [Unknown]
  - Gastritis [Unknown]
  - Pruritus [Unknown]
  - Herpes virus infection [Unknown]
  - Oral herpes [Unknown]
  - Blepharitis [Unknown]
  - Eye inflammation [Unknown]
  - Dry eye [Unknown]
  - Arthralgia [Unknown]
  - Asthma [Unknown]

NARRATIVE: CASE EVENT DATE: 20241202
